FAERS Safety Report 19620890 (Version 1)
Quarter: 2021Q3

REPORT INFORMATION
  Report Type: Report from Study
  Country: CA (occurrence: CA)
  Receive Date: 20210728
  Receipt Date: 20210728
  Transmission Date: 20211014
  Serious: Yes (Other)
  Sender: FDA-Public Use
  Company Number: CA-JNJFOC-20210743634

PATIENT
  Age: 39 Year
  Sex: Female
  Weight: 168 kg

DRUGS (1)
  1. REMICADE [Suspect]
     Active Substance: INFLIXIMAB
     Indication: COLITIS ULCERATIVE
     Route: 042

REACTIONS (8)
  - Pallor [Recovering/Resolving]
  - Cough [Recovering/Resolving]
  - Respiratory rate increased [Recovering/Resolving]
  - Infusion related reaction [Recovering/Resolving]
  - Lethargy [Recovering/Resolving]
  - Hyperhidrosis [Recovering/Resolving]
  - Somnolence [Recovering/Resolving]
  - Dyspnoea [Recovering/Resolving]

NARRATIVE: CASE EVENT DATE: 20210720
